FAERS Safety Report 17965019 (Version 4)
Quarter: 2020Q3

REPORT INFORMATION
  Report Type: Spontaneous
  Country: AT (occurrence: AT)
  Receive Date: 20200630
  Receipt Date: 20200816
  Transmission Date: 20201103
  Serious: Yes (Life-Threatening, Hospitalization, Other)
  Sender: FDA-Public Use
  Company Number: PHHY2017AT190814

PATIENT
  Age: 5 Year
  Sex: Male

DRUGS (36)
  1. CYCLOPHOSPHAMIDE. [Suspect]
     Active Substance: CYCLOPHOSPHAMIDE
     Indication: B PRECURSOR TYPE ACUTE LEUKAEMIA
     Dosage: UNK BLOCK IB
     Route: 065
  2. AMBISOME [Suspect]
     Active Substance: AMPHOTERICIN B
     Indication: ANTIFUNGAL TREATMENT
     Dosage: 1 MG/KG, QD
     Route: 065
     Dates: start: 201503, end: 2015
  3. CASPOFUNGIN [Suspect]
     Active Substance: CASPOFUNGIN
     Indication: ANTIFUNGAL TREATMENT
     Dosage: 1 MG/KG, DAILY
     Route: 065
     Dates: start: 201502, end: 201503
  4. 6?MERCAPTOPURINE MONOHYDRATE [Suspect]
     Active Substance: MERCAPTOPURINE
     Indication: ACUTE LYMPHOCYTIC LEUKAEMIA
     Dosage: 1.5 MG/KG, DAILY
     Route: 065
     Dates: start: 201504, end: 201505
  5. DOXORUBICIN [Suspect]
     Active Substance: DOXORUBICIN
     Indication: B PRECURSOR TYPE ACUTE LEUKAEMIA
     Dosage: UNK
     Route: 065
  6. DOXORUBICIN [Suspect]
     Active Substance: DOXORUBICIN
     Indication: ACUTE LYMPHOCYTIC LEUKAEMIA
  7. METHOTREXATE SODIUM. [Suspect]
     Active Substance: METHOTREXATE SODIUM
     Indication: ACUTE LYMPHOCYTIC LEUKAEMIA
     Dosage: UNK, BLOCK IA
     Route: 037
     Dates: start: 201408
  8. DAUNORUBICIN [Suspect]
     Active Substance: DAUNORUBICIN
     Indication: B PRECURSOR TYPE ACUTE LEUKAEMIA
     Dosage: 4 DOSES BLOCK IA
     Route: 065
     Dates: start: 201408, end: 2014
  9. 6?MERCAPTOPURINE MONOHYDRATE [Suspect]
     Active Substance: MERCAPTOPURINE
     Indication: B PRECURSOR TYPE ACUTE LEUKAEMIA
     Dosage: UNK BLOCK IB
     Route: 065
     Dates: start: 2014, end: 2014
  10. VORICONAZOLE. [Suspect]
     Active Substance: VORICONAZOLE
     Indication: MUCORMYCOSIS
     Dosage: 8 MG/KG, QD
     Route: 065
     Dates: start: 201503, end: 201504
  11. POSACONAZOLE [Suspect]
     Active Substance: POSACONAZOLE
     Indication: ANTIFUNGAL TREATMENT
     Dosage: 15 MG/KG, QD
     Route: 048
     Dates: start: 201504, end: 201505
  12. POSACONAZOLE [Suspect]
     Active Substance: POSACONAZOLE
     Indication: PULMONARY MUCORMYCOSIS
     Dosage: 20 MG/KG, QD
     Route: 048
     Dates: start: 201604, end: 201605
  13. VINCRISTINE [Suspect]
     Active Substance: VINCRISTINE
     Dosage: UNK BLOCK IIA
     Route: 065
     Dates: start: 201501, end: 201501
  14. DEXAMETHASONE. [Suspect]
     Active Substance: DEXAMETHASONE
     Indication: B PRECURSOR TYPE ACUTE LEUKAEMIA
     Dosage: 10 MG/M2, QD
     Route: 065
  15. DEXAMETHASONE. [Suspect]
     Active Substance: DEXAMETHASONE
     Indication: ACUTE LYMPHOCYTIC LEUKAEMIA
     Dosage: UNK BLOCK II A
     Route: 065
     Dates: start: 201501, end: 201502
  16. PREDNISONE. [Suspect]
     Active Substance: PREDNISONE
     Indication: B PRECURSOR TYPE ACUTE LEUKAEMIA
     Dosage: UNK
     Route: 065
  17. METHOTREXATE SODIUM. [Suspect]
     Active Substance: METHOTREXATE SODIUM
     Dosage: UNK, BLOCK IB
     Route: 037
  18. AMBISOME [Suspect]
     Active Substance: AMPHOTERICIN B
     Indication: MUCORMYCOSIS
     Dosage: 5 MG/KG, QD
     Route: 065
     Dates: start: 201503, end: 201504
  19. AMBISOME [Suspect]
     Active Substance: AMPHOTERICIN B
     Dosage: 2.5 MG/KG, QD(EVERY 3RD DAY)
     Route: 065
     Dates: start: 201505
  20. VINCRISTINE [Suspect]
     Active Substance: VINCRISTINE
     Indication: B PRECURSOR TYPE ACUTE LEUKAEMIA
     Dosage: UNK
     Route: 065
  21. CASPOFUNGIN [Suspect]
     Active Substance: CASPOFUNGIN
     Indication: ASPERGILLUS INFECTION
  22. METHOTREXATE SODIUM. [Suspect]
     Active Substance: METHOTREXATE SODIUM
     Dosage: 0.5?0.7 MG/KG, QW
     Route: 065
     Dates: start: 201504, end: 201505
  23. AMBISOME [Suspect]
     Active Substance: AMPHOTERICIN B
     Indication: ASPERGILLUS INFECTION
     Dosage: 10 MG/KG EVERY 2ND DAY (INCREASED TO 10 MG/KG)
     Route: 065
     Dates: start: 201504, end: 201505
  24. VORICONAZOLE. [Suspect]
     Active Substance: VORICONAZOLE
     Indication: ANTIFUNGAL TREATMENT
     Dosage: 15 MG/KG, QD
     Route: 065
     Dates: start: 201503, end: 201504
  25. DAUNORUBICIN [Suspect]
     Active Substance: DAUNORUBICIN
     Indication: ACUTE LYMPHOCYTIC LEUKAEMIA
     Dosage: UNK
     Route: 065
  26. THIOGUANINE [Suspect]
     Active Substance: THIOGUANINE
     Indication: B PRECURSOR TYPE ACUTE LEUKAEMIA
     Dosage: UNK
     Route: 065
  27. ONCASPAR [Suspect]
     Active Substance: PEGASPARGASE
     Indication: B PRECURSOR TYPE ACUTE LEUKAEMIA
     Dosage: 2500 U/M2 DAY 12 AND DAY 8 OF BLOCK IIA
     Route: 042
     Dates: start: 201501, end: 201501
  28. CYTARABINE. [Suspect]
     Active Substance: CYTARABINE
     Indication: B PRECURSOR TYPE ACUTE LEUKAEMIA
     Dosage: UNK
     Route: 065
  29. AMBISOME [Suspect]
     Active Substance: AMPHOTERICIN B
     Dosage: DOSAGES WERE REDUCED
     Route: 065
  30. AMBISOME [Suspect]
     Active Substance: AMPHOTERICIN B
     Dosage: 5 MG/KG, DAILY (INCREASE TO 5 MG/KG/DAY EVERY 3RD DAY)
     Route: 065
     Dates: start: 201604
  31. VINCRISTINE [Suspect]
     Active Substance: VINCRISTINE
     Indication: ACUTE LYMPHOCYTIC LEUKAEMIA
     Dosage: UNK BLOCK IA
     Route: 065
     Dates: start: 201408, end: 201408
  32. AMPHOTERICIN B. [Concomitant]
     Active Substance: AMPHOTERICIN B
     Indication: GASTRIC INFECTION
     Dosage: UNK
     Route: 065
     Dates: start: 201408, end: 201612
  33. VORICONAZOLE. [Suspect]
     Active Substance: VORICONAZOLE
     Indication: ASPERGILLUS INFECTION
  34. PREDNISONE. [Suspect]
     Active Substance: PREDNISONE
     Indication: ACUTE LYMPHOCYTIC LEUKAEMIA
     Dosage: UNK BLOCK IA
     Route: 065
     Dates: start: 201408
  35. CEFTAZIDIM [Concomitant]
     Active Substance: CEFTAZIDIME
     Indication: LUNG INFILTRATION
     Dosage: UNK
     Route: 065
  36. LINEZOLID. [Concomitant]
     Active Substance: LINEZOLID
     Indication: LUNG INFILTRATION
     Dosage: UNK
     Route: 065

REACTIONS (7)
  - Pulmonary mucormycosis [Recovered/Resolved]
  - Drug ineffective [Recovered/Resolved]
  - Aspergillus infection [Recovering/Resolving]
  - Off label use [Unknown]
  - Hypokalaemia [Unknown]
  - Mucormycosis [Unknown]
  - Intentional product use issue [Unknown]

NARRATIVE: CASE EVENT DATE: 201504
